FAERS Safety Report 7786419-X (Version None)
Quarter: 2011Q3

REPORT INFORMATION
  Report Type: 
  Country: None (occurrence: None)
  Receive Date: 20110927
  Receipt Date: 20110920
  Transmission Date: 20111222
  Serious: Yes (Death, Life-Threatening, Hospitalization)
  Sender: FDA-Public Use
  Company Number: 2011SP010175

PATIENT
  Age: 31 Year
  Sex: Female

DRUGS (4)
  1. MENOPUR [Concomitant]
  2. PUREGON (FOLLITROPIN BETA /01348901/) [Suspect]
     Indication: IN VITRO FERTILISATION
     Dosage: 150 IU, SC
     Route: 058
     Dates: start: 20110125, end: 20110206
  3. LUCRIN DEPOT (LEUPROLINE ACETATE) [Concomitant]
  4. PREGNYL [Suspect]
     Indication: IN VITRO FERTILISATION
     Dosage: 10000 IU, IM
     Route: 030
     Dates: start: 20110207, end: 20110207

REACTIONS (6)
  - COMA [None]
  - PULMONARY EMBOLISM [None]
  - ISCHAEMIC STROKE [None]
  - OVERDOSE [None]
  - OVARIAN HYPERSTIMULATION SYNDROME [None]
  - CONTRAINDICATION TO MEDICAL TREATMENT [None]
